FAERS Safety Report 4494342-1 (Version None)
Quarter: 2004Q4

REPORT INFORMATION
  Report Type: 
  Country: None (occurrence: None)
  Receive Date: 20041102
  Receipt Date: 20041018
  Transmission Date: 20050328
  Serious: Yes (Other)
  Sender: FDA-Public Use
  Company Number: GBS040915614

PATIENT
  Age: 76 Year
  Sex: Female

DRUGS (4)
  1. FORTEO [Suspect]
     Indication: OSTEOPOROSIS
     Dosage: 20 UG DAY
     Dates: start: 20040804, end: 20040922
  2. PREDNISOLONE [Concomitant]
  3. ADCAL-D3 [Concomitant]
  4. CODYDRAMOL (DIHYDROCODEINE TARTRATE) [Concomitant]

REACTIONS (6)
  - ANOREXIA [None]
  - BEDRIDDEN [None]
  - FEELING ABNORMAL [None]
  - HEADACHE [None]
  - MALAISE [None]
  - NAUSEA [None]
